FAERS Safety Report 6259954-3 (Version None)
Quarter: 2009Q3

REPORT INFORMATION
  Report Type: 
  Country: None (occurrence: None)
  Receive Date: 20090706
  Receipt Date: 20090706
  Transmission Date: 20100115
  Serious: Yes (Hospitalization)
  Sender: FDA-Public Use
  Company Number: None

PATIENT
  Age: 25 Year
  Sex: Male

DRUGS (1)
  1. CHANTIX [Suspect]
     Dosage: 1 MG BID ORAL (PO)
     Route: 048
     Dates: start: 20090614, end: 20090628

REACTIONS (2)
  - DEPRESSION [None]
  - SUICIDAL IDEATION [None]
